FAERS Safety Report 8386462-6 (Version None)
Quarter: 2012Q2

REPORT INFORMATION
  Report Type: 
  Country: None (occurrence: None)
  Receive Date: 20120525
  Receipt Date: 20120510
  Transmission Date: 20120825
  Serious: No
  Sender: FDA-Public Use
  Company Number: US-B.I. PHARMACEUTICALS,INC./RIDGEFIELD-2012-BP-10540BP

PATIENT
  Sex: Female

DRUGS (13)
  1. PRADAXA [Concomitant]
     Dosage: 300 MG
     Route: 048
  2. ZALEPLON [Concomitant]
     Indication: INSOMNIA
     Dosage: 10 MG
     Route: 048
  3. ALZ-NAC [Concomitant]
     Route: 048
  4. DONEPEZIL HCL [Concomitant]
     Dosage: 10 MG
     Route: 048
  5. CALCIUM CARBONATE [Concomitant]
     Indication: SUPPLEMENTATION THERAPY
     Route: 048
  6. DIGOXIN [Concomitant]
     Dosage: 125 MG
     Route: 048
  7. LEVOCETIRIZINE DIHYDROCHLORIDE [Concomitant]
     Dosage: 5 MG
     Route: 048
  8. METOPROLOL TARTRATE [Concomitant]
     Dosage: 50 MG
     Route: 048
  9. DILTIAZEM [Concomitant]
     Dosage: 90 MG
     Route: 048
  10. VITAMIN E [Concomitant]
     Dosage: 400 MG
     Route: 048
  11. LISINOPRIL [Concomitant]
     Dosage: 2.5 MG
     Route: 048
  12. SPIRIVA [Suspect]
     Indication: CHRONIC OBSTRUCTIVE PULMONARY DISEASE
     Dosage: 18 MCG
     Route: 055
     Dates: start: 20120501
  13. IMIPRAMINE [Concomitant]
     Dosage: 10 MG
     Route: 048

REACTIONS (4)
  - FEELING ABNORMAL [None]
  - COUGH [None]
  - DRY MOUTH [None]
  - ANXIETY [None]
